FAERS Safety Report 11123987 (Version 1)
Quarter: 2015Q2

REPORT INFORMATION
  Report Type: Spontaneous
  Country: US (occurrence: US)
  Receive Date: 20150520
  Receipt Date: 20150520
  Transmission Date: 20150821
  Serious: No
  Sender: FDA-Public Use
  Company Number: US-BRISTOL-MYERS SQUIBB COMPANY-BMS-2015-031747

PATIENT
  Age: 53 Year
  Sex: Male

DRUGS (2)
  1. SPRYCEL [Suspect]
     Active Substance: DASATINIB
     Indication: PRODUCT USED FOR UNKNOWN INDICATION
     Dosage: 20 MG, UNK EVERY ALTERNATIVE DAY
     Route: 048
     Dates: start: 20140618
  2. SPRYCEL [Suspect]
     Active Substance: DASATINIB
     Dosage: 40 UNK, UNK
     Route: 048
     Dates: start: 20140618

REACTIONS (1)
  - Dizziness [Unknown]

NARRATIVE: CASE EVENT DATE: 20150512
